FAERS Safety Report 8695155 (Version 2)
Quarter: 2013Q4

REPORT INFORMATION
  Report Type: Spontaneous
  Country: US (occurrence: US)
  Receive Date: 20120731
  Receipt Date: 20131101
  Transmission Date: 20140711
  Serious: No
  Sender: FDA-Public Use
  Company Number: US-009507513-1207USA009635

PATIENT
  Sex: Female

DRUGS (14)
  1. ZETIA [Suspect]
     Indication: BLOOD CHOLESTEROL
     Dosage: UNK
     Route: 048
     Dates: start: 2002, end: 2011
  2. PROVENTIL [Concomitant]
     Route: 048
  3. MUCINEX [Concomitant]
  4. ASPIRIN [Concomitant]
  5. HYDROCHLOROT [Concomitant]
  6. LIPITOR [Concomitant]
  7. MK-0521 [Concomitant]
  8. ISOSORBIDE MONONITRATE [Concomitant]
  9. FLUOXETINE [Concomitant]
  10. DEXILANT [Concomitant]
  11. RANITIDINE [Concomitant]
  12. METOPROLOL [Concomitant]
  13. LEVOTHYROXINE SODIUM [Concomitant]
  14. ADVAIR [Concomitant]

REACTIONS (1)
  - Angina pectoris [Not Recovered/Not Resolved]
